FAERS Safety Report 5859642-9 (Version None)
Quarter: 2008Q3

REPORT INFORMATION
  Report Type: 
  Country: None (occurrence: None)
  Receive Date: 20080827
  Receipt Date: 20080818
  Transmission Date: 20090109
  Serious: Yes (Hospitalization)
  Sender: FDA-Public Use
  Company Number: US-JNJFOC-20080705247

PATIENT
  Sex: Male
  Weight: 73.2 kg

DRUGS (3)
  1. DOXIL [Suspect]
     Route: 042
  2. DOXIL [Suspect]
     Indication: MYCOSIS FUNGOIDES
     Route: 042
  3. BEXAROTENE [Suspect]
     Indication: MYCOSIS FUNGOIDES
     Route: 065

REACTIONS (3)
  - INFECTION [None]
  - PAIN OF SKIN [None]
  - ULCER [None]
